FAERS Safety Report 8996486 (Version 2)
Quarter: 2013Q1

REPORT INFORMATION
  Report Type: Spontaneous
  Country: US (occurrence: US)
  Receive Date: 20130104
  Receipt Date: 20130108
  Transmission Date: 20140127
  Serious: No
  Sender: FDA-Public Use
  Company Number: US-BIOGENIDEC-2012BI064904

PATIENT
  Age: 38 Year
  Sex: Male

DRUGS (1)
  1. AVONEX [Suspect]
     Indication: MULTIPLE SCLEROSIS
     Route: 030
     Dates: start: 20090330

REACTIONS (5)
  - Dysphemia [Not Recovered/Not Resolved]
  - Local swelling [Not Recovered/Not Resolved]
  - Drug dose omission [Recovered/Resolved]
  - Pain in extremity [Not Recovered/Not Resolved]
  - Anxiety [Not Recovered/Not Resolved]
